FAERS Safety Report 25433943 (Version 3)
Quarter: 2025Q4

REPORT INFORMATION
  Report Type: Spontaneous
  Country: JP (occurrence: JP)
  Receive Date: 20250613
  Receipt Date: 20251224
  Transmission Date: 20260118
  Serious: Yes (Other)
  Sender: VERICEL
  Company Number: JP-VERICEL-JP-VCEL-25-000171

PATIENT
  Age: 89 Year
  Sex: Female
  Weight: 51 kg

DRUGS (9)
  1. BROMELAINS [Suspect]
     Active Substance: BROMELAINS
     Indication: Burns second degree
     Dosage: UNK
     Route: 061
     Dates: start: 20240820, end: 20240820
  2. BROMELAINS [Suspect]
     Active Substance: BROMELAINS
     Dosage: UNK
     Route: 061
     Dates: start: 20240821, end: 20240821
  3. NOREPINEPHRINE BITARTRATE [Concomitant]
     Active Substance: NOREPINEPHRINE BITARTRATE
     Indication: Blood pressure increased
     Dosage: UP TO 0.3 GAMMA
     Route: 041
     Dates: start: 20240820, end: 20240822
  4. VASOPRESSIN [Concomitant]
     Active Substance: VASOPRESSIN
     Indication: Blood pressure increased
     Dosage: UNK
     Route: 042
     Dates: start: 20240820, end: 20240821
  5. CEFAZOLIN SODIUM [Concomitant]
     Active Substance: CEFAZOLIN SODIUM
     Indication: Infection prophylaxis
     Dosage: 1 GRAM, TID
     Route: 042
     Dates: start: 20240820, end: 20240822
  6. CEFTAZIDIME [Concomitant]
     Active Substance: CEFTAZIDIME
     Indication: Infection prophylaxis
     Dosage: 1 GRAM, TID
     Route: 042
     Dates: start: 20240821, end: 20240826
  7. FENTANYL [Concomitant]
     Active Substance: FENTANYL
     Indication: Analgesic therapy
     Dosage: 40 MICG/H
     Route: 042
     Dates: start: 20240819, end: 20240823
  8. MIDAZOLAM [Concomitant]
     Active Substance: MIDAZOLAM
     Indication: Analgesic therapy
     Dosage: 2 MG/H
     Route: 042
     Dates: start: 20240820, end: 20240821
  9. PROPOFOL [Concomitant]
     Active Substance: PROPOFOL
     Indication: Analgesic therapy
     Dosage: 50 MG/H
     Route: 041
     Dates: start: 20240820, end: 20240823

REACTIONS (2)
  - Distributive shock [Recovering/Resolving]
  - Pyrexia [Recovering/Resolving]

NARRATIVE: CASE EVENT DATE: 20240820
